FAERS Safety Report 7005545-6 (Version None)
Quarter: 2010Q3

REPORT INFORMATION
  Report Type: 
  Country: None (occurrence: None)
  Receive Date: 20100921
  Receipt Date: 20100910
  Transmission Date: 20110219
  Serious: Yes (Death, Hospitalization)
  Sender: FDA-Public Use
  Company Number: A0759890A

PATIENT
  Age: 56 Year
  Sex: Female

DRUGS (8)
  1. AVANDIA [Suspect]
     Dosage: 4MG PER DAY
     Route: 048
  2. AVANDAMET [Suspect]
     Indication: PRODUCT USED FOR UNKNOWN INDICATION
     Route: 048
     Dates: start: 20060201, end: 20070517
  3. SYNTHROID [Concomitant]
  4. CRESTOR [Concomitant]
  5. QUINAPRIL [Concomitant]
  6. ALDACTAZIDE [Concomitant]
  7. DIGOXIN [Concomitant]
  8. COREG [Concomitant]

REACTIONS (1)
  - MYOCARDIAL INFARCTION [None]
